FAERS Safety Report 5863401-0 (Version None)
Quarter: 2008Q3

REPORT INFORMATION
  Report Type: 
  Country: None (occurrence: None)
  Receive Date: 20080828
  Receipt Date: 20080821
  Transmission Date: 20090109
  Serious: Yes (Death, Hospitalization, Other)
  Sender: FDA-Public Use
  Company Number: PHFR2008GB01266

PATIENT
  Sex: Male

DRUGS (13)
  1. CLOZARIL [Suspect]
     Indication: SCHIZOPHRENIA
     Dosage: 300MG / DAY
     Route: 048
     Dates: start: 20030601, end: 20031201
  2. CLOZARIL [Suspect]
     Dosage: UNK
     Route: 048
     Dates: start: 20060511
  3. CLOZARIL [Suspect]
     Dosage: 250 MG/DAY
     Route: 048
     Dates: start: 20061101
  4. HALOPERIDOL [Concomitant]
     Indication: PSYCHOTIC DISORDER
     Dosage: 10 MG, PRN
     Route: 048
     Dates: start: 20060510
  5. HALOPERIDOL [Concomitant]
     Indication: SCHIZOPHRENIA
  6. DIAZEPAM [Concomitant]
     Indication: AGITATION
     Dosage: 10 MG, QD
     Route: 048
  7. FRUSEMIDE [Concomitant]
     Indication: HYPERTENSION
     Dosage: 40 MG/DAY
     Route: 048
     Dates: start: 20060522
  8. ISOSORBIDE MONONITRATE [Concomitant]
     Indication: MYOCARDIAL ISCHAEMIA
     Dosage: 20 MG/DAY
     Route: 048
     Dates: start: 20060531
  9. RAMIPRIL [Concomitant]
     Indication: HYPERTENSION
     Dosage: 2.5MG/DAY
     Route: 048
     Dates: start: 20061004
  10. ASPIRIN [Concomitant]
     Route: 065
  11. SIMVASTATIN [Concomitant]
     Indication: LIPIDS INCREASED
     Dosage: 10 MG/DAY
     Route: 048
     Dates: start: 20061004
  12. PROCYCLIDINE HYDROCHLORIDE 2MG TAB [Concomitant]
     Indication: EXTRAPYRAMIDAL DISORDER
     Route: 065
  13. SALBUTAMOL [Concomitant]

REACTIONS (19)
  - ANAEMIA [None]
  - AZOTAEMIA [None]
  - BENIGN PROSTATIC HYPERPLASIA [None]
  - BLADDER OBSTRUCTION [None]
  - BLOOD CREATININE INCREASED [None]
  - BLOOD UREA INCREASED [None]
  - CATHETER PLACEMENT [None]
  - COMA [None]
  - DIABETIC COMPLICATION [None]
  - GASTROINTESTINAL HAEMORRHAGE [None]
  - HAEMATURIA [None]
  - HAEMOGLOBIN DECREASED [None]
  - HYPOPHAGIA [None]
  - NEOPLASM MALIGNANT [None]
  - OBSTRUCTIVE UROPATHY [None]
  - PROSTATOMEGALY [None]
  - PULMONARY OEDEMA [None]
  - RED BLOOD CELL COUNT DECREASED [None]
  - RENAL FAILURE [None]
